FAERS Safety Report 15243303 (Version 1)
Quarter: 2018Q3

REPORT INFORMATION
  Report Type: Spontaneous
  Country: US (occurrence: US)
  Receive Date: 20180806
  Receipt Date: 20180806
  Transmission Date: 20181010
  Serious: No
  Sender: FDA-Public Use
  Company Number: US-ASTRAZENECA-2018SE96084

PATIENT
  Age: 669 Month
  Sex: Male
  Weight: 54.4 kg

DRUGS (2)
  1. BYDUREON [Suspect]
     Active Substance: EXENATIDE
     Indication: GLYCOSYLATED HAEMOGLOBIN INCREASED
     Route: 058
     Dates: start: 201711, end: 201805
  2. METFORMIN [Concomitant]
     Active Substance: METFORMIN HYDROCHLORIDE
     Dosage: UNKNOWN
     Route: 065

REACTIONS (6)
  - Skin sensitisation [Unknown]
  - Hypersensitivity [Unknown]
  - Hypoaesthesia [Recovering/Resolving]
  - Muscle spasms [Unknown]
  - Dermatitis allergic [Recovering/Resolving]
  - Skin irritation [Unknown]

NARRATIVE: CASE EVENT DATE: 201712
